FAERS Safety Report 18099714 (Version 2)
Quarter: 2020Q3

REPORT INFORMATION
  Report Type: Report from Study
  Country: IL (occurrence: IL)
  Receive Date: 20200731
  Receipt Date: 20200817
  Transmission Date: 20201103
  Serious: Yes (Other)
  Sender: FDA-Public Use
  Company Number: NVSC2020IL201406

PATIENT
  Age: 61 Year
  Sex: Female

DRUGS (2)
  1. KISQALI [Suspect]
     Active Substance: RIBOCICLIB
     Indication: NEOPLASM MALIGNANT
     Dosage: 600 MG, QD
     Route: 048
     Dates: start: 20200628, end: 20200726
  2. KISQALI [Suspect]
     Active Substance: RIBOCICLIB
     Indication: BREAST CANCER
     Dosage: 600 MG, QD
     Route: 048
     Dates: start: 20200802

REACTIONS (9)
  - Urine output decreased [Recovering/Resolving]
  - Sinus tachycardia [Unknown]
  - Product dose omission issue [Recovered/Resolved]
  - Abdominal distension [Recovering/Resolving]
  - Dysuria [Not Recovered/Not Resolved]
  - Ascites [Unknown]
  - Nausea [Not Recovered/Not Resolved]
  - Asthenia [Not Recovered/Not Resolved]
  - Inappropriate schedule of product administration [Recovered/Resolved]

NARRATIVE: CASE EVENT DATE: 20200719
